FAERS Safety Report 6615980-3 (Version None)
Quarter: 2010Q1

REPORT INFORMATION
  Report Type: 
  Country: None (occurrence: None)
  Receive Date: 20100305
  Receipt Date: 20100224
  Transmission Date: 20100710
  Serious: Yes (Other)
  Sender: FDA-Public Use
  Company Number: A0848148A

PATIENT
  Age: 61 Year
  Sex: Female
  Weight: 54.5 kg

DRUGS (11)
  1. BUPROPION HCL [Suspect]
     Indication: SMOKING CESSATION THERAPY
     Route: 065
  2. ALPRAZOLAM [Concomitant]
     Indication: SLEEP DISORDER
  3. ACID REFLUX MED. [Concomitant]
     Indication: GASTROOESOPHAGEAL REFLUX DISEASE
  4. LEVBID [Concomitant]
     Indication: IRRITABLE BOWEL SYNDROME
  5. LEVSIN [Concomitant]
     Indication: IRRITABLE BOWEL SYNDROME
  6. ZOMIG [Concomitant]
     Indication: MIGRAINE
  7. VICODIN [Concomitant]
  8. PROMETHAZINE [Concomitant]
     Indication: NAUSEA
  9. ONDANSETRON [Concomitant]
     Indication: NAUSEA
  10. ZYRTEC [Concomitant]
     Indication: SEASONAL ALLERGY
  11. CHANTIX [Concomitant]
     Indication: EX-TOBACCO USER
     Dosage: .5MG TWICE PER DAY
     Route: 048

REACTIONS (6)
  - AGITATION [None]
  - BLOOD PRESSURE FLUCTUATION [None]
  - ILL-DEFINED DISORDER [None]
  - NIGHTMARE [None]
  - PANIC ATTACK [None]
  - SUICIDAL IDEATION [None]
